FAERS Safety Report 23993577 (Version 1)
Quarter: 2024Q2

REPORT INFORMATION
  Report Type: Other
  Country: FR (occurrence: FR)
  Receive Date: 20240620
  Receipt Date: 20240620
  Transmission Date: 20240715
  Serious: Yes (Other)
  Sender: FDA-Public Use
  Company Number: FR-PHARMAAND GMBH-2024PHR00374

PATIENT
  Age: 42 Year
  Sex: Female

DRUGS (2)
  1. PEGASYS [Suspect]
     Active Substance: PEGINTERFERON ALFA-2A
     Indication: Chronic hepatitis B
     Dosage: 180 MICROGRAM, 1X/WEEK
     Route: 058
     Dates: start: 202401
  2. HEPCLUDEX [BULEVIRTIDE ACETATE] [Concomitant]
     Indication: Hepatitis D
     Dosage: 2 MG, 1X/DAY
     Route: 058
     Dates: start: 202401

REACTIONS (2)
  - Microcytic anaemia [Not Recovered/Not Resolved]
  - Leukopenia [Not Recovered/Not Resolved]

NARRATIVE: CASE EVENT DATE: 20240209
